FAERS Safety Report 4950566-8 (Version None)
Quarter: 2006Q1

REPORT INFORMATION
  Report Type: 
  Country: None (occurrence: None)
  Receive Date: 20060321
  Receipt Date: 20060321
  Transmission Date: 20060701
  Serious: Yes (Hospitalization)
  Sender: FDA-Public Use
  Company Number: None

PATIENT
  Age: 82 Year
  Sex: Female
  Weight: 54.4316 kg

DRUGS (10)
  1. PHENYTOIN [Suspect]
     Indication: CONVULSION
  2. K-DUR 10 [Concomitant]
  3. PLAVIX [Concomitant]
  4. ARICEPT [Concomitant]
  5. ASPIRIN [Concomitant]
  6. MEGACE [Concomitant]
  7. PREVACID [Concomitant]
  8. ISORDIL [Concomitant]
  9. DILANTIN [Concomitant]
  10. KEPPRA [Concomitant]

REACTIONS (6)
  - DRUG LEVEL INCREASED [None]
  - LETHARGY [None]
  - MENTAL STATUS CHANGES [None]
  - NYSTAGMUS [None]
  - SOMNOLENCE [None]
  - URINARY TRACT INFECTION [None]
